FAERS Safety Report 11119849 (Version 2)
Quarter: 2015Q3

REPORT INFORMATION
  Report Type: Spontaneous
  Country: BR (occurrence: BR)
  Receive Date: 20150518
  Receipt Date: 20150707
  Transmission Date: 20151125
  Serious: Yes (Hospitalization)
  Sender: FDA-Public Use
  Company Number: BR-PFIZER INC-2015163513

PATIENT
  Age: 69 Year
  Sex: Male

DRUGS (3)
  1. CITALOR [Suspect]
     Active Substance: ATORVASTATIN
     Indication: BLOOD CHOLESTEROL ABNORMAL
     Dosage: 1 TABLET, 1X/DAY (AT NIGHT)
     Route: 048
     Dates: start: 2014, end: 201411
  2. LISTRIL [Concomitant]
     Active Substance: LISINOPRIL
     Indication: HYPERTENSION
     Dosage: 1 TABLET, DAILY
     Dates: start: 2014, end: 201411
  3. CITALOR [Suspect]
     Active Substance: ATORVASTATIN
     Indication: HYPERTENSION

REACTIONS (2)
  - Product use issue [Unknown]
  - Ischaemic stroke [Unknown]
